FAERS Safety Report 18462862 (Version 1)
Quarter: 2020Q4

REPORT INFORMATION
  Report Type: Spontaneous
  Country: US (occurrence: US)
  Receive Date: 20201104
  Receipt Date: 20201104
  Transmission Date: 20210114
  Serious: Yes (Other)
  Sender: FDA-Public Use
  Company Number: US-PERRIGO-20US015614

PATIENT
  Sex: Female

DRUGS (1)
  1. ALBUTEROL SULFATE. [Suspect]
     Active Substance: ALBUTEROL SULFATE
     Indication: ASTHMA
     Dosage: 90 TO 180 MCGS, PRN
     Route: 055
     Dates: start: 2020, end: 202010

REACTIONS (2)
  - Asthma [Recovered/Resolved]
  - Device delivery system issue [Unknown]
